FAERS Safety Report 4600153-6 (Version None)
Quarter: 2005Q1

REPORT INFORMATION
  Report Type: 
  Country: None (occurrence: None)
  Receive Date: 20050303
  Receipt Date: 20050211
  Transmission Date: 20050727
  Serious: Yes (Hospitalization)
  Sender: FDA-Public Use
  Company Number: 212634

PATIENT
  Age: 51 Year
  Sex: Female
  Weight: 80 kg

DRUGS (1)
  1. HERCEPTIN [Suspect]
     Indication: BREAST CANCER
     Dosage: 498 MG, Q3W, INTRAVENOUS
     Route: 042
     Dates: start: 20040114, end: 20041013

REACTIONS (3)
  - BRONCHITIS [None]
  - PULMONARY EMBOLISM [None]
  - THROMBOSIS [None]
